FAERS Safety Report 25926367 (Version 1)
Quarter: 2025Q4

REPORT INFORMATION
  Report Type: Spontaneous
  Country: TR (occurrence: TR)
  Receive Date: 20251015
  Receipt Date: 20251015
  Transmission Date: 20260118
  Serious: Yes (Hospitalization, Other)
  Sender: ABBVIE
  Company Number: TR-ABBVIE-6501857

PATIENT
  Age: 24 Year
  Sex: Female

DRUGS (1)
  1. HUMIRA [Suspect]
     Active Substance: ADALIMUMAB
     Indication: Uveitis
     Dosage: FORM STRENGTH: 40 MILLIGRAM
     Route: 058

REACTIONS (7)
  - Epiretinal membrane [Unknown]
  - Visual impairment [Unknown]
  - Maculopathy [Unknown]
  - Vitreous opacities [Unknown]
  - Vitritis [Unknown]
  - Ocular hypertension [Unknown]
  - Peripheral vascular disorder [Unknown]
